FAERS Safety Report 16317587 (Version 1)
Quarter: 2019Q2

REPORT INFORMATION
  Report Type: Spontaneous
  Country: FR (occurrence: FR)
  Receive Date: 20190516
  Receipt Date: 20190516
  Transmission Date: 20190711
  Serious: Yes (Death)
  Sender: FDA-Public Use
  Company Number: FR-SUN PHARMACEUTICAL INDUSTRIES LTD-2019R1-207823

PATIENT
  Age: 37 Year
  Sex: Male

DRUGS (7)
  1. CLORAZEPATE [Concomitant]
     Active Substance: CLORAZEPATE DIPOTASSIUM
     Indication: BIPOLAR DISORDER
     Dosage: UNK
     Route: 065
  2. SERTRALINE [Concomitant]
     Active Substance: SERTRALINE HYDROCHLORIDE
     Indication: BIPOLAR DISORDER
     Dosage: UNK
     Route: 065
  3. LAMOTRIGINE. [Concomitant]
     Active Substance: LAMOTRIGINE
     Indication: BIPOLAR DISORDER
     Dosage: UNK
     Route: 065
  4. AMISULPRIDE [Concomitant]
     Active Substance: AMISULPRIDE
     Indication: BIPOLAR DISORDER
     Dosage: UNK
     Route: 065
  5. MODAFINIL. [Suspect]
     Active Substance: MODAFINIL
     Indication: BIPOLAR DISORDER
     Dosage: UNK
     Route: 065
  6. ETHYLPHENIDATE [Suspect]
     Active Substance: ETHYLPHENIDATE
     Indication: BIPOLAR DISORDER
     Dosage: UNK
     Route: 065
  7. METHYLPHENIDATE. [Suspect]
     Active Substance: METHYLPHENIDATE
     Indication: BIPOLAR DISORDER
     Dosage: UNK
     Route: 065

REACTIONS (2)
  - Asphyxia [Fatal]
  - Drug abuse [Fatal]
